FAERS Safety Report 17233039 (Version 2)
Quarter: 2020Q1

REPORT INFORMATION
  Report Type: Spontaneous
  Country: DE (occurrence: DE)
  Receive Date: 20200104
  Receipt Date: 20200207
  Transmission Date: 20200409
  Serious: Yes (Hospitalization, Disabling)
  Sender: FDA-Public Use
  Company Number: DE-TEVA-2019-DE-1161186

PATIENT
  Age: 59 Year
  Sex: Male
  Weight: 97 kg

DRUGS (3)
  1. LYRICA [Suspect]
     Active Substance: PREGABALIN
     Indication: NEUROPATHY PERIPHERAL
     Dosage: 600 MILLIGRAM DAILY; DAILY DOSE: 600 MG MILLGRAM(S) EVERY DAYS 3 SEPARATED DOSES
     Route: 048
     Dates: start: 20131201, end: 20140430
  2. PREGABALIN. [Suspect]
     Active Substance: PREGABALIN
     Indication: SURGERY
     Dosage: 800 MILLIGRAM DAILY; DAILY DOSE: 800 MG MILLGRAM(S) EVERY DAYS, 4 SEPARATED DOSES
     Route: 048
     Dates: start: 20140501, end: 20140730
  3. LYRICA [Suspect]
     Active Substance: PREGABALIN
     Indication: SURGERY
     Dosage: 400 MILLIGRAM DAILY; DAILY DOSE: 400 MG MILLGRAM(S) EVERY DAYS, 2 SEPARATED DOSES
     Route: 048
     Dates: start: 20130201, end: 20131130

REACTIONS (37)
  - Disturbance in attention [Not Recovered/Not Resolved]
  - Flatulence [Not Recovered/Not Resolved]
  - Somnolence [Not Recovered/Not Resolved]
  - Insomnia [Not Recovered/Not Resolved]
  - Nightmare [Not Recovered/Not Resolved]
  - Nausea [Not Recovered/Not Resolved]
  - Confusional state [Not Recovered/Not Resolved]
  - Dizziness [Not Recovered/Not Resolved]
  - Oedema [Not Recovered/Not Resolved]
  - Dysgraphia [Not Recovered/Not Resolved]
  - Headache [Not Recovered/Not Resolved]
  - Paraesthesia [Not Recovered/Not Resolved]
  - Agitation [Not Recovered/Not Resolved]
  - Gait disturbance [Not Recovered/Not Resolved]
  - Restlessness [Not Recovered/Not Resolved]
  - Weight increased [Not Recovered/Not Resolved]
  - Vision blurred [Not Recovered/Not Resolved]
  - Fatigue [Not Recovered/Not Resolved]
  - Hyperhidrosis [Not Recovered/Not Resolved]
  - Disorientation [Not Recovered/Not Resolved]
  - Nystagmus [Not Recovered/Not Resolved]
  - Vomiting [Not Recovered/Not Resolved]
  - Panic attack [Not Recovered/Not Resolved]
  - Amnesia [Not Recovered/Not Resolved]
  - Respiratory tract infection [Not Recovered/Not Resolved]
  - Dysarthria [Not Recovered/Not Resolved]
  - Pruritus [Not Recovered/Not Resolved]
  - Diplopia [Not Recovered/Not Resolved]
  - Pharyngitis [Not Recovered/Not Resolved]
  - Aphasia [Not Recovered/Not Resolved]
  - Dyspnoea [Not Recovered/Not Resolved]
  - Myoclonus [Not Recovered/Not Resolved]
  - Delirium [Not Recovered/Not Resolved]
  - Drug withdrawal syndrome [Not Recovered/Not Resolved]
  - Dyskinesia [Not Recovered/Not Resolved]
  - Anxiety [Not Recovered/Not Resolved]
  - Dysphagia [Not Recovered/Not Resolved]
